FAERS Safety Report 8119478-5 (Version None)
Quarter: 2012Q1

REPORT INFORMATION
  Report Type: 
  Country: None (occurrence: None)
  Receive Date: 20120207
  Receipt Date: 20120131
  Transmission Date: 20120608
  Serious: Yes (Other)
  Sender: FDA-Public Use
  Company Number: PHEH2012US001679

PATIENT
  Sex: Male
  Weight: 101.59 kg

DRUGS (9)
  1. LUPRON [Concomitant]
     Indication: PROSTATE CANCER
     Dosage: 30 MG, Q3MO
  2. METFORMIN HCL [Concomitant]
     Dosage: 150 MG, QD
  3. ZOMETA [Suspect]
     Indication: PROSTATE CANCER METASTATIC
     Dosage: UNK UKN, UNK
     Dates: start: 20110201
  4. ZOMETA [Suspect]
     Dosage: 4 MG, UNK
     Route: 042
     Dates: start: 20110311
  5. LUPRON [Concomitant]
     Dosage: 12.5 MG, UNK
  6. ACCUPRIL [Concomitant]
     Dosage: 40 MG, UNK
  7. LIPITOR [Concomitant]
     Dosage: 40 MG, QD
  8. SYNTHROID [Concomitant]
     Dosage: 125 UG, QD
  9. ZANTAC [Concomitant]
     Dosage: 150 MG, QD

REACTIONS (1)
  - PROSTATIC SPECIFIC ANTIGEN INCREASED [None]
